FAERS Safety Report 21971274 (Version 1)
Quarter: 2023Q1

REPORT INFORMATION
  Report Type: Spontaneous
  Country: US (occurrence: US)
  Receive Date: 20230209
  Receipt Date: 20230209
  Transmission Date: 20230417
  Serious: No
  Sender: FDA-Public Use
  Company Number: US-009507513-2301USA004129

PATIENT
  Age: 64 Year
  Sex: Male

DRUGS (24)
  1. TEMODAR [Suspect]
     Active Substance: TEMOZOLOMIDE
     Indication: Haemangiopericytoma
     Dosage: UNK
     Route: 048
  2. TEMODAR [Suspect]
     Active Substance: TEMOZOLOMIDE
     Indication: Metastases to lung
  3. TEMODAR [Suspect]
     Active Substance: TEMOZOLOMIDE
     Indication: Metastases to mouth
  4. TEMODAR [Suspect]
     Active Substance: TEMOZOLOMIDE
     Indication: Metastases to mouth
  5. SUNITINIB [Concomitant]
     Active Substance: SUNITINIB
     Indication: Haemangiopericytoma
     Dosage: UNK
  6. SUNITINIB [Concomitant]
     Active Substance: SUNITINIB
     Indication: Metastases to lung
  7. SUNITINIB [Concomitant]
     Active Substance: SUNITINIB
     Indication: Metastases to mouth
  8. SUNITINIB [Concomitant]
     Active Substance: SUNITINIB
     Indication: Metastases to mouth
  9. GEMCITABINE [Concomitant]
     Active Substance: GEMCITABINE
     Indication: Haemangiopericytoma
     Dosage: UNK
  10. GEMCITABINE [Concomitant]
     Active Substance: GEMCITABINE
     Indication: Metastases to lung
  11. GEMCITABINE [Concomitant]
     Active Substance: GEMCITABINE
     Indication: Metastases to mouth
  12. GEMCITABINE [Concomitant]
     Active Substance: GEMCITABINE
     Indication: Metastases to mouth
  13. DOCETAXEL [Concomitant]
     Active Substance: DOCETAXEL
     Indication: Haemangiopericytoma
     Dosage: UNK
  14. DOCETAXEL [Concomitant]
     Active Substance: DOCETAXEL
     Indication: Metastases to lung
  15. DOCETAXEL [Concomitant]
     Active Substance: DOCETAXEL
     Indication: Metastases to mouth
  16. DOCETAXEL [Concomitant]
     Active Substance: DOCETAXEL
     Indication: Metastases to mouth
  17. DOXORUBICIN [Concomitant]
     Active Substance: DOXORUBICIN
     Indication: Haemangiopericytoma
     Dosage: UNK
  18. DOXORUBICIN [Concomitant]
     Active Substance: DOXORUBICIN
     Indication: Metastases to lung
  19. DOXORUBICIN [Concomitant]
     Active Substance: DOXORUBICIN
     Indication: Metastases to mouth
  20. DOXORUBICIN [Concomitant]
     Active Substance: DOXORUBICIN
     Indication: Metastases to mouth
  21. OLARATUMAB [Concomitant]
     Active Substance: OLARATUMAB
     Indication: Haemangiopericytoma
     Dosage: UNK
  22. OLARATUMAB [Concomitant]
     Active Substance: OLARATUMAB
     Indication: Metastases to lung
  23. OLARATUMAB [Concomitant]
     Active Substance: OLARATUMAB
     Indication: Metastases to mouth
  24. OLARATUMAB [Concomitant]
     Active Substance: OLARATUMAB
     Indication: Metastases to mouth

REACTIONS (1)
  - Product use in unapproved indication [Unknown]
